FAERS Safety Report 16071111 (Version 1)
Quarter: 2019Q1

REPORT INFORMATION
  Report Type: Spontaneous
  Country: US (occurrence: US)
  Receive Date: 20190314
  Receipt Date: 20190314
  Transmission Date: 20190418
  Serious: No
  Sender: FDA-Public Use
  Company Number: US-PFIZER INC-2019101030

PATIENT
  Age: 75 Year
  Sex: Female
  Weight: 104.3 kg

DRUGS (1)
  1. TESSALON [Suspect]
     Active Substance: BENZONATATE
     Indication: COUGH
     Dosage: 100 MG, AS NEEDED (ONE CAPSULE BY MOUTH EVERY 8 HOURS)
     Route: 048

REACTIONS (1)
  - Drug effect delayed [Unknown]
